FAERS Safety Report 9143614 (Version 2)
Quarter: 2013Q1

REPORT INFORMATION
  Report Type: Spontaneous
  Country: NZ (occurrence: NZ)
  Receive Date: 20130306
  Receipt Date: 20130319
  Transmission Date: 20140127
  Serious: Yes (Death)
  Sender: FDA-Public Use
  Company Number: NZ-ROCHE-1198043

PATIENT
  Sex: Male

DRUGS (1)
  1. RITUXIMAB [Suspect]
     Indication: VASCULITIS
     Route: 042
     Dates: start: 20121112

REACTIONS (3)
  - Renal failure chronic [Fatal]
  - Hepatic cirrhosis [Fatal]
  - Ascites [Fatal]
